FAERS Safety Report 5376949-2 (Version None)
Quarter: 2007Q3

REPORT INFORMATION
  Report Type: 
  Country: None (occurrence: None)
  Receive Date: 20070703
  Receipt Date: 20070622
  Transmission Date: 20080115
  Serious: Yes (Hospitalization, Disabling)
  Sender: FDA-Public Use
  Company Number: DE-ELI_LILLY_AND_COMPANY-DE200706006227

PATIENT
  Age: 53 Year
  Sex: Female
  Weight: 65 kg

DRUGS (9)
  1. ZYPREXA [Suspect]
     Indication: BIPOLAR I DISORDER
     Dosage: 5 MG, DAILY (1/D)
     Route: 048
     Dates: start: 20060915, end: 20060926
  2. ZYPREXA [Suspect]
     Dosage: 20 MG, DAILY (1/D)
     Route: 048
     Dates: start: 20060927, end: 20060930
  3. ZYPREXA [Suspect]
     Dosage: 15 MG, DAILY (1/D)
     Route: 048
     Dates: start: 20061001, end: 20061006
  4. ZYPREXA [Suspect]
     Dosage: 15 MG, DAILY (1/D)
     Route: 048
     Dates: start: 20040801
  5. ERGENYL [Concomitant]
     Dosage: 1000 MG, DAILY (1/D)
     Route: 048
     Dates: end: 20060926
  6. ERGENYL [Concomitant]
     Dosage: 1500 MG, DAILY (1/D)
     Route: 048
     Dates: start: 20060927, end: 20060927
  7. ERGENYL [Concomitant]
     Dosage: 2000 MG, DAILY (1/D)
     Route: 048
     Dates: start: 20060928, end: 20060930
  8. ERGENYL [Concomitant]
     Dosage: 3000 MG, DAILY (1/D)
     Route: 048
     Dates: start: 20061001, end: 20061006
  9. ERGENYL [Concomitant]
     Dosage: 2000 MG, DAILY (1/D)
     Route: 048
     Dates: start: 20061007

REACTIONS (5)
  - CAROTID ARTERIOSCLEROSIS [None]
  - CEREBRAL INFARCTION [None]
  - FALL [None]
  - MANIA [None]
  - WEIGHT INCREASED [None]
